FAERS Safety Report 9866303 (Version 1)
Quarter: 2014Q1

REPORT INFORMATION
  Report Type: Spontaneous
  Country: US (occurrence: US)
  Receive Date: 20140203
  Receipt Date: 20140203
  Transmission Date: 20141002
  Serious: No
  Sender: FDA-Public Use
  Company Number: US-ALLERGAN-1318585US

PATIENT
  Age: 60 Year
  Sex: Female

DRUGS (3)
  1. RESTASIS [Suspect]
     Indication: DRY EYE
     Dosage: 2 GTT, UNK
     Route: 047
     Dates: end: 201309
  2. SYNTHROID [Concomitant]
     Indication: HYPOTHYROIDISM
     Dosage: UNK
  3. BENICAR [Concomitant]
     Indication: HYPERTENSION
     Dosage: UNK

REACTIONS (5)
  - Gastric ulcer [Recovering/Resolving]
  - Inappropriate schedule of drug administration [Unknown]
  - Cough [Recovering/Resolving]
  - Gastrooesophageal reflux disease [Recovering/Resolving]
  - Urinary tract infection [Recovered/Resolved]
